FAERS Safety Report 6497076-7 (Version None)
Quarter: 2009Q4

REPORT INFORMATION
  Report Type: 
  Country: None (occurrence: None)
  Receive Date: 20091215
  Receipt Date: 20090330
  Transmission Date: 20100525
  Serious: No
  Sender: FDA-Public Use
  Company Number: A0770441A

PATIENT
  Age: 76 Year
  Sex: Male

DRUGS (6)
  1. AVODART [Suspect]
     Indication: BENIGN PROSTATIC HYPERPLASIA
     Dosage: 1CAP PER DAY
     Route: 048
  2. FLOMAX [Concomitant]
  3. ATIVAN [Concomitant]
  4. AMLODIPINE [Concomitant]
  5. LEVOTRIN [Concomitant]
  6. HYDROCHLOROTHIAZIDE [Concomitant]

REACTIONS (4)
  - CHROMATURIA [None]
  - ERECTILE DYSFUNCTION [None]
  - LIBIDO DECREASED [None]
  - SEMEN VOLUME DECREASED [None]
